FAERS Safety Report 23287216 (Version 1)
Quarter: 2023Q4

REPORT INFORMATION
  Report Type: Spontaneous
  Country: US (occurrence: US)
  Receive Date: 20231212
  Receipt Date: 20231212
  Transmission Date: 20240110
  Serious: No
  Sender: FDA-Public Use
  Company Number: US-AMGEN-USASP2023214460

PATIENT
  Sex: Female
  Weight: 54.6 kg

DRUGS (1)
  1. NPLATE [Suspect]
     Active Substance: ROMIPLOSTIM
     Indication: Platelet count decreased
     Dosage: UNK (DOSE ORDERED: 30 MCG , DOSE REQUESTED: 125MCG)
     Route: 065

REACTIONS (1)
  - Off label use [Unknown]
